FAERS Safety Report 4746801-1 (Version None)
Quarter: 2005Q3

REPORT INFORMATION
  Report Type: 
  Country: None (occurrence: None)
  Receive Date: 20050815
  Receipt Date: 20050801
  Transmission Date: 20060218
  Serious: Yes (Hospitalization)
  Sender: FDA-Public Use
  Company Number: 2005110240

PATIENT
  Age: 71 Year
  Sex: Female

DRUGS (7)
  1. AROMASIN [Suspect]
     Indication: BREAST CANCER
     Dosage: 25 MG (25 MG, DAILY), ORAL
     Route: 048
     Dates: start: 20050501
  2. NATRILIX (INDAPAMIDE) [Concomitant]
  3. PROPAFENONE HCL [Concomitant]
  4. ASPIRIN [Concomitant]
  5. RANITIDINE HYDROCHLORIDE [Concomitant]
  6. CARVEDILOL [Concomitant]
  7. SIMVASTATIN [Concomitant]

REACTIONS (2)
  - ARRHYTHMIA [None]
  - VENTRICULAR HYPERTROPHY [None]
